FAERS Safety Report 22654979 (Version 1)
Quarter: 2023Q2

REPORT INFORMATION
  Report Type: Spontaneous
  Country: US (occurrence: None)
  Receive Date: 20230628
  Receipt Date: 20230628
  Transmission Date: 20230722
  Serious: Yes (Other)
  Sender: FDA-Public Use
  Company Number: None

PATIENT
  Age: 41 Year
  Sex: Female
  Weight: 90 kg

DRUGS (7)
  1. WEGOVY [Suspect]
     Active Substance: SEMAGLUTIDE
     Indication: Insulin resistance
     Dosage: OTHER QUANTITY : 1 INJECTION(S);?FREQUENCY : WEEKLY;?
     Route: 058
     Dates: start: 20230615
  2. Spirnolactone [Concomitant]
  3. LEVOTHYROXINE [Concomitant]
     Active Substance: LEVOTHYROXINE
  4. progesterone birth control (oral) [Concomitant]
  5. stimulant adhd medication [Concomitant]
  6. OMEPRAZOLE [Concomitant]
     Active Substance: OMEPRAZOLE
  7. VITAMINS [Concomitant]
     Active Substance: VITAMINS

REACTIONS (1)
  - Intermenstrual bleeding [None]

NARRATIVE: CASE EVENT DATE: 20230623
